FAERS Safety Report 5621886-9 (Version None)
Quarter: 2008Q1

REPORT INFORMATION
  Report Type: 
  Country: None (occurrence: None)
  Receive Date: 20080211
  Receipt Date: 20071207
  Transmission Date: 20080703
  Serious: No
  Sender: FDA-Public Use
  Company Number: US-BRISTOL-MYERS SQUIBB COMPANY-14008833

PATIENT
  Age: 61 Year
  Sex: Female

DRUGS (1)
  1. IXEMPRA [Suspect]
     Indication: BREAST CANCER
     Dosage: INITIAL INFUSION-UNK;SECOND INFUSION-07DEC07

REACTIONS (1)
  - FLUSHING [None]
